FAERS Safety Report 5509299-1 (Version None)
Quarter: 2007Q4

REPORT INFORMATION
  Report Type: 
  Country: None (occurrence: None)
  Receive Date: 20071106
  Receipt Date: 20071030
  Transmission Date: 20080405
  Serious: Yes (Death)
  Sender: FDA-Public Use
  Company Number: 163-20785-06070845

PATIENT
  Age: 23 Year
  Sex: Female

DRUGS (12)
  1. THALOMID [Suspect]
     Indication: METASTATIC MALIGNANT MELANOMA
     Dosage: 200 MG, 1 IN 1 D, ORAL
     Route: 048
     Dates: start: 20060301, end: 20060524
  2. TEMODAR [Concomitant]
  3. XANAX [Concomitant]
  4. PHENERGAN (PROMETHAZINE HYDROCHLORIDE) [Concomitant]
  5. DECADRON [Concomitant]
  6. ZANTAC 150 [Concomitant]
  7. LASIX [Concomitant]
  8. VICODIN [Concomitant]
  9. OXYCONTIN [Concomitant]
  10. OXYCODONE HCL [Concomitant]
  11. LEXAPRO [Concomitant]
  12. ATIVAN [Concomitant]

REACTIONS (9)
  - DEHYDRATION [None]
  - DISEASE PROGRESSION [None]
  - FAILURE TO THRIVE [None]
  - HYPONATRAEMIA [None]
  - METASTASES TO CENTRAL NERVOUS SYSTEM [None]
  - METASTATIC MALIGNANT MELANOMA [None]
  - NAUSEA [None]
  - ORAL INTAKE REDUCED [None]
  - VOMITING [None]
